FAERS Safety Report 9360449 (Version 1)
Quarter: 2013Q2

REPORT INFORMATION
  Report Type: Spontaneous
  Country: CA (occurrence: CA)
  Receive Date: 20130621
  Receipt Date: 20130621
  Transmission Date: 20140414
  Serious: Yes (Life-Threatening, Hospitalization, Disabling)
  Sender: FDA-Public Use
  Company Number: CA-JNJFOC-20130608037

PATIENT
  Age: 44 Year
  Sex: Female
  Weight: 86 kg

DRUGS (4)
  1. INVEGA SUSTENNA [Suspect]
     Indication: PRODUCT USED FOR UNKNOWN INDICATION
     Route: 030
  2. COLACE [Concomitant]
     Route: 065
  3. PROPRANOLOL [Concomitant]
     Route: 065
  4. SYNTHROID [Concomitant]
     Route: 065

REACTIONS (1)
  - Pulmonary arterial hypertension [Unknown]
